FAERS Safety Report 14587018 (Version 1)
Quarter: 2018Q1

REPORT INFORMATION
  Report Type: Spontaneous
  Country: US (occurrence: US)
  Receive Date: 20180228
  Receipt Date: 20180228
  Transmission Date: 20180509
  Serious: No
  Sender: FDA-Public Use
  Company Number: None

PATIENT
  Age: 52 Year
  Sex: Male
  Weight: 63.5 kg

DRUGS (1)
  1. REMICADE [Suspect]
     Active Substance: INFLIXIMAB
     Indication: CROHN^S DISEASE
     Dosage: EVERY 6 WEEKS
     Route: 042
     Dates: start: 20180205, end: 20180205

REACTIONS (2)
  - Heart rate increased [None]
  - Flushing [None]

NARRATIVE: CASE EVENT DATE: 20180205
